FAERS Safety Report 15126700 (Version 3)
Quarter: 2018Q3

REPORT INFORMATION
  Report Type: Report from Study
  Country: PL (occurrence: PL)
  Receive Date: 20180710
  Receipt Date: 20180806
  Transmission Date: 20181010
  Serious: Yes (Death)
  Sender: FDA-Public Use
  Company Number: PL-PFIZER INC-2018275096

PATIENT
  Age: 56 Year
  Sex: Male
  Weight: 85 kg

DRUGS (10)
  1. TOFACITINIB CITRATE [Suspect]
     Active Substance: TOFACITINIB CITRATE
     Indication: RHEUMATOID ARTHRITIS
     Dosage: 5.0 MG, 2X/DAY
     Route: 048
     Dates: start: 20151005, end: 20180509
  2. INSULINUM HUMANUM [Concomitant]
     Indication: TYPE 2 DIABETES MELLITUS
     Dosage: UNK
     Dates: start: 20140117
  3. INDAPAMIDUM [Concomitant]
     Indication: HYPERTENSION
     Dosage: UNK
     Dates: start: 20150506
  4. CILOSTAZOLUM [Concomitant]
     Indication: ARTERIOSCLEROSIS
     Dosage: UNK
     Dates: start: 20140904
  5. ALLOPURINOL. [Concomitant]
     Active Substance: ALLOPURINOL
     Indication: PURINE METABOLISM DISORDER
     Dosage: UNK
     Dates: start: 20150506
  6. FOLIC ACID. [Concomitant]
     Active Substance: FOLIC ACID
     Indication: RHEUMATOID ARTHRITIS
     Dosage: UNK
     Dates: start: 20150506
  7. METHOTREXATUM /00113801/ [Concomitant]
     Indication: RHEUMATOID ARTHRITIS
     Dosage: UNK
     Dates: start: 20150506
  8. AMLODIPINUM [Concomitant]
     Indication: HYPERTENSION
     Dosage: UNK
     Dates: start: 20150506
  9. NEBIVOLOLUM [Concomitant]
     Indication: HYPERTENSION
     Dosage: UNK
     Dates: start: 20150506
  10. ASPIRIN. [Concomitant]
     Active Substance: ASPIRIN
     Indication: ARTERIOSCLEROSIS
     Dosage: UNK
     Dates: start: 20140117

REACTIONS (1)
  - Cardiac death [Fatal]

NARRATIVE: CASE EVENT DATE: 20180510
